FAERS Safety Report 24126212 (Version 1)
Quarter: 2024Q3

REPORT INFORMATION
  Report Type: Report from Study
  Country: US (occurrence: None)
  Receive Date: 20240723
  Receipt Date: 20240723
  Transmission Date: 20241016
  Serious: Yes (Other)
  Sender: ASTRAZENECA
  Company Number: 2021A788106

PATIENT
  Sex: Male

DRUGS (2)
  1. LYNPARZA [Suspect]
     Active Substance: OLAPARIB
     Indication: Pancreatic carcinoma
     Route: 048
     Dates: start: 20211006
  2. DULOXETINE [Concomitant]
     Active Substance: DULOXETINE

REACTIONS (6)
  - Neuropathy peripheral [Recovering/Resolving]
  - Tumour marker increased [Unknown]
  - Renal impairment [Unknown]
  - Erectile dysfunction [Unknown]
  - Fatigue [Unknown]
  - Product dose omission in error [Unknown]
